FAERS Safety Report 10297037 (Version 1)
Quarter: 2014Q3

REPORT INFORMATION
  Report Type: Report from Study
  Country: IT (occurrence: IT)
  Receive Date: 20140711
  Receipt Date: 20140711
  Transmission Date: 20150326
  Serious: Yes (Other)
  Sender: FDA-Public Use
  Company Number: IT-PFIZER INC-2014190630

PATIENT
  Age: 69 Year
  Sex: Female

DRUGS (2)
  1. SUTENT [Suspect]
     Active Substance: SUNITINIB MALATE
     Indication: METASTATIC RENAL CELL CARCINOMA
     Dosage: 50 MG, /DAY (4 WEEKS ON/ 2 WEEKS OFF)
  2. SUTENT [Suspect]
     Active Substance: SUNITINIB MALATE
     Dosage: 25 MG/DAY (4 WEEKS ON/ 2 WEEKS OFF)
     Dates: end: 20140116

REACTIONS (1)
  - Retinal vascular thrombosis [Unknown]
